FAERS Safety Report 20373507 (Version 1)
Quarter: 2022Q1

REPORT INFORMATION
  Report Type: Report from Study
  Country: EG (occurrence: EG)
  Receive Date: 20220125
  Receipt Date: 20220125
  Transmission Date: 20220423
  Serious: Yes (Other)
  Sender: FDA-Public Use
  Company Number: EG-NOVARTISPH-NVSC2022EG013100

PATIENT
  Age: 25 Year
  Sex: Female

DRUGS (3)
  1. COSENTYX [Suspect]
     Active Substance: SECUKINUMAB
     Indication: Psoriasis
     Dosage: 2 DOSAGE FORM (2 PENS), Q2W
     Route: 058
     Dates: start: 202109
  2. COSENTYX [Suspect]
     Active Substance: SECUKINUMAB
     Dosage: 2 DOSAGE FORM (2 PENS), QMO
     Route: 058
  3. CATAFLAM [Concomitant]
     Active Substance: DICLOFENAC POTASSIUM
     Indication: Analgesic therapy
     Dosage: 2 DOSAGE FORM, PRN
     Route: 065

REACTIONS (2)
  - Psoriasis [Not Recovered/Not Resolved]
  - Product dose omission issue [Not Recovered/Not Resolved]

NARRATIVE: CASE EVENT DATE: 20210901
